FAERS Safety Report 24772626 (Version 1)
Quarter: 2024Q4

REPORT INFORMATION
  Report Type: Spontaneous
  Country: US (occurrence: US)
  Receive Date: 20241225
  Receipt Date: 20241225
  Transmission Date: 20250114
  Serious: No
  Sender: GLAXOSMITHKLINE
  Company Number: US-GSKCCFUS-Case-02176550_AE-119845

PATIENT
  Age: 64 Year
  Sex: Female

DRUGS (1)
  1. BENLYSTA [Suspect]
     Active Substance: BELIMUMAB
     Indication: Product used for unknown indication
     Dosage: 200 MG
     Route: 058

REACTIONS (3)
  - Injection site pain [Unknown]
  - Incorrect dose administered [Unknown]
  - Product complaint [Unknown]

NARRATIVE: CASE EVENT DATE: 20241214
